FAERS Safety Report 8505335-9 (Version None)
Quarter: 2012Q3

REPORT INFORMATION
  Report Type: 
  Country: None (occurrence: None)
  Receive Date: 20120712
  Receipt Date: 20120706
  Transmission Date: 20120928
  Serious: Yes (Other)
  Sender: FDA-Public Use
  Company Number: US-PFIZER INC-2012162510

PATIENT
  Age: 20 Year
  Sex: Female

DRUGS (3)
  1. RUFINAMIDE [Suspect]
     Dosage: UNK
  2. ONFI [Suspect]
     Dosage: UNK
  3. GABAPENTIN [Suspect]
     Dosage: UNK

REACTIONS (5)
  - OEDEMA PERIPHERAL [None]
  - PROTEIN TOTAL DECREASED [None]
  - EOSINOPHIL COUNT INCREASED [None]
  - BLOOD ALBUMIN DECREASED [None]
  - EPILEPSY [None]
